FAERS Safety Report 9570147 (Version 1)
Quarter: 2013Q3

REPORT INFORMATION
  Report Type: Spontaneous
  Country: US (occurrence: US)
  Receive Date: 20130930
  Receipt Date: 20130930
  Transmission Date: 20140515
  Serious: No
  Sender: FDA-Public Use
  Company Number: US-AMGEN-USASP2013064747

PATIENT
  Age: 46 Year
  Sex: Female
  Weight: 113.38 kg

DRUGS (12)
  1. ENBREL [Suspect]
     Indication: PRODUCT USED FOR UNKNOWN INDICATION
     Dosage: 50 MG, ONCE A WEEK
     Route: 058
  2. CALTRATE + D                       /00944201/ [Concomitant]
     Dosage: 600 UNK, UNK
  3. PRISTIQ [Concomitant]
     Dosage: 50 MG, UNK
  4. PROMETRIUM                         /00110701/ [Concomitant]
     Dosage: 200 MG, UNK
  5. VIVELLE-DOT [Concomitant]
     Dosage: 0.037 MG, UNK
  6. CLONAZEPAM [Concomitant]
     Dosage: 1 MG, UNK
  7. FOLIC ACID [Concomitant]
     Dosage: 1 MG, UNK
  8. LEVOTHYROXIN [Concomitant]
     Dosage: 150 MUG, UNK
  9. FISH OIL [Concomitant]
     Dosage: UNK
  10. EXCEDRIN                           /00110301/ [Concomitant]
     Dosage: UNK
  11. TYLENOL                            /00020001/ [Concomitant]
     Dosage: 325 MG, UNK
  12. VITAMIN D3 [Concomitant]
     Dosage: 10000 UNIT, UNK

REACTIONS (1)
  - Fatigue [Unknown]
